FAERS Safety Report 4899191-8 (Version None)
Quarter: 2006Q1

REPORT INFORMATION
  Report Type: 
  Country: None (occurrence: None)
  Receive Date: 20060130
  Receipt Date: 20060117
  Transmission Date: 20060701
  Serious: Yes (Other)
  Sender: FDA-Public Use
  Company Number: 2005014275

PATIENT
  Age: 6 Year
  Sex: Male

DRUGS (1)
  1. GENOTROPIN [Suspect]
     Indication: BODY HEIGHT BELOW NORMAL
     Dosage: 0.5 MG (0.5 MG, DAILY)
     Dates: start: 20040101, end: 20041001

REACTIONS (2)
  - MEDULLOBLASTOMA [None]
  - RECURRENT CANCER [None]
